FAERS Safety Report 7764266-2 (Version None)
Quarter: 2011Q3

REPORT INFORMATION
  Report Type: 
  Country: None (occurrence: None)
  Receive Date: 20110920
  Receipt Date: 20110920
  Transmission Date: 20111222
  Serious: Yes (Hospitalization)
  Sender: FDA-Public Use
  Company Number: None

PATIENT
  Age: 50 Year
  Sex: Male
  Weight: 87.7 kg

DRUGS (1)
  1. CARBAMAZEPINE [Suspect]
     Indication: MANIA
     Dosage: 200 MG AT BEDTIME PO
     Route: 048
     Dates: start: 20110620, end: 20110722

REACTIONS (2)
  - ERYTHEMA MULTIFORME [None]
  - PURPURA [None]
